FAERS Safety Report 14161703 (Version 1)
Quarter: 2017Q4

REPORT INFORMATION
  Report Type: Spontaneous
  Country: US (occurrence: US)
  Receive Date: 20171106
  Receipt Date: 20171106
  Transmission Date: 20180321
  Serious: No
  Sender: FDA-Public Use
  Company Number: US-ENDO PHARMACEUTICALS INC-2016-005579

PATIENT
  Age: 75 Year
  Sex: Male
  Weight: 81.18 kg

DRUGS (8)
  1. VANTAS [Suspect]
     Active Substance: HISTRELIN ACETATE
     Dosage: 50 MG, ONCE A YEAR
     Route: 058
     Dates: start: 20160805, end: 20160903
  2. MVI [Concomitant]
     Active Substance: VITAMINS
     Indication: VITAMIN SUPPLEMENTATION
  3. ASPIRIN EC [Concomitant]
     Active Substance: ASPIRIN
     Indication: PRODUCT USED FOR UNKNOWN INDICATION
  4. VANTAS [Suspect]
     Active Substance: HISTRELIN ACETATE
     Indication: PROSTATE CANCER
     Dosage: 50 MG, ONCE A YEAR
     Route: 058
     Dates: start: 20160909, end: 20170913
  5. FISH OIL [Concomitant]
     Active Substance: FISH OIL
     Indication: PRODUCT USED FOR UNKNOWN INDICATION
  6. LISINOPRIL TABLETS 40MG [Concomitant]
     Active Substance: LISINOPRIL
     Indication: HYPERTENSION
  7. PROLIA [Concomitant]
     Active Substance: DENOSUMAB
     Indication: BONE LOSS
  8. VANTAS [Suspect]
     Active Substance: HISTRELIN ACETATE
     Dosage: 50 MG, ONCE A YEAR
     Route: 058
     Dates: start: 20150728

REACTIONS (5)
  - Implant site discharge [Unknown]
  - Device expulsion [Recovered/Resolved]
  - Device expulsion [Recovered/Resolved]
  - Device defective [Unknown]
  - Implant site erythema [Unknown]

NARRATIVE: CASE EVENT DATE: 20160903
